FAERS Safety Report 9357577 (Version 1)
Quarter: 2013Q2

REPORT INFORMATION
  Report Type: Spontaneous
  Country: GB (occurrence: None)
  Receive Date: 20130617
  Receipt Date: 20130617
  Transmission Date: 20140414
  Serious: Yes (Hospitalization)
  Sender: FDA-Public Use
  Company Number: 1743964

PATIENT
  Age: 80 Year
  Sex: Female
  Weight: 67 kg

DRUGS (9)
  1. VINCRISTINE SULFATE [Suspect]
     Indication: B-CELL LYMPHOMA
     Dates: start: 20121128, end: 20130327
  2. LIPOSOMAL [Suspect]
     Indication: B-CELL LYMPHOMA
     Dosage: INTRAVENOUS (NOT OTHERWISE SPECIFIED)
     Route: 042
     Dates: start: 20121128, end: 20130327
  3. RITUXIMAB [Suspect]
     Indication: B-CELL LYMPHOMA
     Dates: start: 20121128, end: 20130327
  4. CYCLOPHOSPHAMIDE [Suspect]
     Indication: B-CELL LYMPHOMA
     Dates: start: 20121128, end: 20130327
  5. PREDNISOLONE [Suspect]
     Indication: B-CELL LYMPHOMA
     Dates: start: 20121128, end: 20130331
  6. (ALLOPURINOL) [Concomitant]
  7. (OMEPRAZOLE) [Concomitant]
  8. (CO-TRIMOXAZOLE) [Concomitant]
  9. (ACYCLOVIR /00587301/) [Concomitant]

REACTIONS (5)
  - Febrile neutropenia [None]
  - Stomatitis [None]
  - Constipation [None]
  - Burning sensation [None]
  - Dysuria [None]
